FAERS Safety Report 6326263-3 (Version None)
Quarter: 2009Q3

REPORT INFORMATION
  Report Type: 
  Country: None (occurrence: None)
  Receive Date: 20090824
  Receipt Date: 20090814
  Transmission Date: 20100115
  Serious: Yes (Disabling, Other)
  Sender: FDA-Public Use
  Company Number: CA-ABBOTT-09P-028-0589645-00

PATIENT
  Sex: Female
  Weight: 49.032 kg

DRUGS (4)
  1. HUMIRA [Suspect]
     Indication: RHEUMATOID ARTHRITIS
     Route: 058
     Dates: start: 20070403
  2. HUMIRA [Suspect]
     Route: 058
     Dates: start: 20090807
  3. COLACE [Concomitant]
     Indication: CONSTIPATION
  4. LACTULOSE [Concomitant]
     Indication: CONSTIPATION

REACTIONS (2)
  - ABDOMINAL PAIN [None]
  - VOLVULUS [None]
